FAERS Safety Report 8807074 (Version 1)
Quarter: 2012Q4

REPORT INFORMATION
  Report Type: 
  Country: US (occurrence: US)
  Receive Date: 20120925
  Receipt Date: 20120925
  Transmission Date: 20130627
  Serious: No
  Sender: FDA-Public Use
  Company Number: US-ASTRAZENECA-2012SE64648

PATIENT
  Age: 72 Year
  Sex: Female
  Weight: 56.7 kg

DRUGS (10)
  1. SYMBICORT PMDI [Suspect]
     Indication: BRONCHITIS
     Dosage: 160/4.5   SAMPLE TWO PUFFS BID
     Route: 055
     Dates: start: 20120711, end: 20120725
  2. SYMBICORT PMDI [Suspect]
     Indication: CHRONIC OBSTRUCTIVE PULMONARY DISEASE
     Dosage: 160/4.5   SAMPLE TWO PUFFS BID
     Route: 055
     Dates: start: 20120711, end: 20120725
  3. SYMBICORT PMDI [Suspect]
     Indication: BRONCHITIS
     Dosage: 160/4.5   SAMPLE TWO PUFFS BID
     Route: 055
     Dates: start: 20120817
  4. SYMBICORT PMDI [Suspect]
     Indication: CHRONIC OBSTRUCTIVE PULMONARY DISEASE
     Dosage: 160/4.5   SAMPLE TWO PUFFS BID
     Route: 055
     Dates: start: 20120817
  5. ALBUTEROL [Concomitant]
     Indication: CHRONIC OBSTRUCTIVE PULMONARY DISEASE
  6. ALBUTEROL [Concomitant]
     Indication: BRONCHIECTASIS
  7. FLUTICASONE [Concomitant]
     Indication: SINUS DISORDER
  8. GENERIC TYLENOL [Concomitant]
     Indication: ARTHRITIS
  9. COSOPT EYE GTTS [Concomitant]
     Indication: GLAUCOMA
  10. LUMIGAN EYE GTTS [Concomitant]
     Indication: GLAUCOMA

REACTIONS (3)
  - Fatigue [Unknown]
  - Oral fungal infection [Unknown]
  - Off label use [Unknown]
